FAERS Safety Report 21454304 (Version 2)
Quarter: 2022Q4

REPORT INFORMATION
  Report Type: Spontaneous
  Country: AT (occurrence: AT)
  Receive Date: 20221013
  Receipt Date: 20221025
  Transmission Date: 20230112
  Serious: Yes (Other)
  Sender: FDA-Public Use
  Company Number: AT-GILEAD-2022-0601339

PATIENT
  Age: 60 Year
  Sex: Female

DRUGS (2)
  1. TRODELVY [Suspect]
     Active Substance: SACITUZUMAB GOVITECAN-HZIY
     Indication: Triple negative breast cancer
     Dosage: D1, D8, EVERY 21 DAYS
     Route: 065
     Dates: start: 20220107
  2. GRANULOCYTE COLONY-STIMULATING FACTOR NOS [Concomitant]
     Active Substance: GRANULOCYTE COLONY-STIMULATING FACTOR NOS
     Dosage: UNK, ON D9
     Dates: start: 202201

REACTIONS (4)
  - Polyneuropathy [Unknown]
  - Alopecia [Unknown]
  - Rash [Unknown]
  - Fatigue [Unknown]
